FAERS Safety Report 4541740-3 (Version None)
Quarter: 2004Q4

REPORT INFORMATION
  Report Type: 
  Country: None (occurrence: None)
  Receive Date: 20041227
  Receipt Date: 20041220
  Transmission Date: 20050328
  Serious: No
  Sender: FDA-Public Use
  Company Number: 2004GB03164

PATIENT
  Age: 20 Year
  Sex: Male

DRUGS (3)
  1. QUETIAPINE [Suspect]
     Indication: SCHIZOPHRENIA
     Dosage: 750 MG DAILY PO
     Route: 048
     Dates: start: 20040101, end: 20040730
  2. CLOZARIL [Suspect]
     Indication: SCHIZOPHRENIA
     Dosage: 300 MG DAILY PO
     Route: 048
     Dates: start: 20040707
  3. CITALOPRAM [Concomitant]

REACTIONS (2)
  - LOSS OF CONSCIOUSNESS [None]
  - SINUS TACHYCARDIA [None]
